FAERS Safety Report 24950090 (Version 2)
Quarter: 2025Q1

REPORT INFORMATION
  Report Type: Spontaneous
  Country: PL (occurrence: PL)
  Receive Date: 20250210
  Receipt Date: 20250312
  Transmission Date: 20250408
  Serious: Yes (Other)
  Sender: PFIZER
  Company Number: PL-ROCHE-10000136465

PATIENT
  Age: 39 Year
  Sex: Male

DRUGS (4)
  1. RITUXIMAB [Suspect]
     Active Substance: RITUXIMAB
     Indication: Follicular lymphoma
     Dates: start: 20220104, end: 20230228
  2. RITUXIMAB [Suspect]
     Active Substance: RITUXIMAB
     Dates: start: 20240307, end: 20240402
  3. LENALIDOMIDE [Suspect]
     Active Substance: LENALIDOMIDE
     Indication: Follicular lymphoma
     Dates: start: 20220104, end: 20230228
  4. LENALIDOMIDE [Suspect]
     Active Substance: LENALIDOMIDE
     Dates: start: 20240307, end: 20240402

REACTIONS (3)
  - Follicular lymphoma [Unknown]
  - Malignant neoplasm progression [Unknown]
  - Metastases to bone [Unknown]
